FAERS Safety Report 7145323-0 (Version None)
Quarter: 2010Q4

REPORT INFORMATION
  Report Type: 
  Country: None (occurrence: None)
  Receive Date: 20101208
  Receipt Date: 20101129
  Transmission Date: 20110411
  Serious: Yes (Death)
  Sender: FDA-Public Use
  Company Number: BR-US-EMD SERONO, INC.-7029917

PATIENT
  Sex: Male

DRUGS (7)
  1. REBIF [Suspect]
     Indication: RELAPSING-REMITTING MULTIPLE SCLEROSIS
     Dates: start: 20040601, end: 20101126
  2. BACLOFEN [Concomitant]
  3. OMEPRAZOLE [Concomitant]
  4. CALMAN [Concomitant]
  5. SIMETICONE [Concomitant]
  6. BUSCOPAN [Concomitant]
  7. ACHEFLAN [Concomitant]

REACTIONS (3)
  - DYSPNOEA [None]
  - PRODUCTIVE COUGH [None]
  - RESPIRATORY ARREST [None]
